FAERS Safety Report 4367178-X (Version None)
Quarter: 2004Q2

REPORT INFORMATION
  Report Type: 
  Country: None (occurrence: None)
  Receive Date: 20040524
  Receipt Date: 20040510
  Transmission Date: 20050107
  Serious: Yes (Other)
  Sender: FDA-Public Use
  Company Number: HQWYE822711MAY04

PATIENT
  Age: 66 Year
  Sex: Male

DRUGS (6)
  1. PROTONIX [Suspect]
     Dosage: ORAL
     Route: 048
     Dates: start: 20040501
  2. DILANTIN [Suspect]
     Indication: CONVULSION
  3. UNIRETIC (HYDROCHLOROTHIAZIDE/MOEXIPRIL HYDROCHLORIDE) [Concomitant]
  4. NORVASC [Concomitant]
  5. PRAVACHOL [Concomitant]
  6. PAXIL [Concomitant]

REACTIONS (3)
  - ANTICONVULSANT DRUG LEVEL DECREASED [None]
  - CONVULSION [None]
  - DRUG INTERACTION [None]
